FAERS Safety Report 6217053-0 (Version None)
Quarter: 2009Q2

REPORT INFORMATION
  Report Type: 
  Country: None (occurrence: None)
  Receive Date: 20090606
  Receipt Date: 20090525
  Transmission Date: 20091009
  Serious: Yes (Death, Hospitalization)
  Sender: FDA-Public Use
  Company Number: KR-PFIZER INC-2008070128

PATIENT
  Age: 53 Year

DRUGS (6)
  1. SUNITINIB MALATE [Suspect]
     Indication: PANCREATIC CARCINOMA
     Dosage: 25 MG, 1X/DAY
     Route: 048
     Dates: start: 20070723
  2. SUNITINIB MALATE [Suspect]
     Dosage: 25 MG, 1X/DAY
     Route: 048
     Dates: start: 20070905, end: 20080707
  3. SUNITINIB MALATE [Suspect]
     Dosage: 25 MG, 1X/DAY
     Route: 048
     Dates: start: 20080804
  4. PYRIDOXIN [Concomitant]
     Dosage: FREQUENCY: 1 TABLET TWICE A DAY
     Route: 048
     Dates: start: 20071022
  5. GLIMEPIRIDE [Concomitant]
     Dosage: FREQUENCY: 1 TABLET ONCE A DAY
     Route: 048
     Dates: start: 20050218
  6. METFORMIN HYDROCHLORIDE [Concomitant]
     Dosage: FREQUENCY: 1 TABLET ONCE A DAY
     Route: 048
     Dates: start: 20050218

REACTIONS (3)
  - DISEASE PROGRESSION [None]
  - EYE DISORDER [None]
  - PANCREATIC CARCINOMA [None]
